FAERS Safety Report 11077523 (Version 2)
Quarter: 2015Q2

REPORT INFORMATION
  Report Type: Spontaneous
  Country: US (occurrence: US)
  Receive Date: 20150430
  Receipt Date: 20150526
  Transmission Date: 20150821
  Serious: No
  Sender: FDA-Public Use
  Company Number: US-JNJFOC-20150220303

PATIENT
  Age: 62 Year
  Sex: Female
  Weight: 38.55 kg

DRUGS (3)
  1. TYLENOL [Suspect]
     Active Substance: ACETAMINOPHEN
     Route: 048
  2. TYLENOL [Suspect]
     Active Substance: ACETAMINOPHEN
     Indication: PROCEDURAL PAIN
     Dosage: 300/60MG
     Route: 048
     Dates: end: 20150218
  3. SEVERAL UNSPECIFIED MEDICATIONS [Concomitant]
     Active Substance: UNSPECIFIED INGREDIENT

REACTIONS (1)
  - Drug dose omission [Recovered/Resolved]

NARRATIVE: CASE EVENT DATE: 20150211
